FAERS Safety Report 23108197 (Version 2)
Quarter: 2023Q4

REPORT INFORMATION
  Report Type: Spontaneous
  Country: US (occurrence: US)
  Receive Date: 20231026
  Receipt Date: 20231129
  Transmission Date: 20240109
  Serious: No
  Sender: FDA-Public Use
  Company Number: US-GSK-US2023AMR143496

PATIENT
  Age: 62 Year
  Sex: Female

DRUGS (1)
  1. NUCALA [Suspect]
     Active Substance: MEPOLIZUMAB
     Indication: Asthma
     Dosage: 100 MG/ML,1X1ML

REACTIONS (5)
  - Exposure via skin contact [Unknown]
  - Wrong technique in device usage process [Unknown]
  - Accidental exposure to product [Unknown]
  - Incorrect dose administered [Unknown]
  - Product complaint [Unknown]

NARRATIVE: CASE EVENT DATE: 20231013
